FAERS Safety Report 21634955 (Version 1)
Quarter: 2022Q4

REPORT INFORMATION
  Report Type: Spontaneous
  Country: US (occurrence: US)
  Receive Date: 20221123
  Receipt Date: 20221123
  Transmission Date: 20230113
  Serious: Yes (Other)
  Sender: FDA-Public Use
  Company Number: US-CIPLA LTD.-2022US06755

PATIENT
  Age: 9 Year
  Sex: Male

DRUGS (2)
  1. NADOLOL [Suspect]
     Active Substance: NADOLOL
     Indication: Long QT syndrome congenital
     Dosage: 40 MILLIGRAM, QD
     Route: 065
  2. NADOLOL [Suspect]
     Active Substance: NADOLOL
     Dosage: 80 MILLIGRAM, QD
     Route: 065

REACTIONS (3)
  - Syncope [Recovered/Resolved]
  - Treatment noncompliance [Unknown]
  - Drug ineffective [Unknown]
